FAERS Safety Report 6027482-6 (Version None)
Quarter: 2009Q1

REPORT INFORMATION
  Report Type: 
  Country: None (occurrence: None)
  Receive Date: 20090105
  Receipt Date: 20081222
  Transmission Date: 20090719
  Serious: Yes (Other)
  Sender: FDA-Public Use
  Company Number: US-ELI_LILLY_AND_COMPANY-US200812005432

PATIENT
  Sex: Female

DRUGS (3)
  1. CYMBALTA [Suspect]
     Indication: BIPOLAR I DISORDER
     Dosage: 20 MG, UNK
  2. ETHANOL [Concomitant]
  3. ABILIFY [Concomitant]

REACTIONS (2)
  - LOSS OF CONSCIOUSNESS [None]
  - SLEEP DISORDER [None]
